FAERS Safety Report 7397272-0 (Version None)
Quarter: 2011Q2

REPORT INFORMATION
  Report Type: 
  Country: None (occurrence: None)
  Receive Date: 20110406
  Receipt Date: 20110323
  Transmission Date: 20111010
  Serious: Yes (Hospitalization)
  Sender: FDA-Public Use
  Company Number: JP-JNJFOC-20110304755

PATIENT
  Age: 61 Year
  Sex: Male

DRUGS (2)
  1. DUROTEP MT [Suspect]
     Indication: DECUBITUS ULCER
     Route: 062
  2. DUROTEP MT [Suspect]
     Indication: PAIN
     Route: 062

REACTIONS (2)
  - PERITONITIS [None]
  - PYREXIA [None]
